FAERS Safety Report 20969123 (Version 2)
Quarter: 2022Q3

REPORT INFORMATION
  Report Type: Spontaneous
  Country: JP (occurrence: None)
  Receive Date: 20220616
  Receipt Date: 20220826
  Transmission Date: 20221027
  Serious: Yes (Hospitalization)
  Sender: FDA-Public Use
  Company Number: 2022A216948

PATIENT
  Age: 21127 Day
  Sex: Female
  Weight: 48 kg

DRUGS (2)
  1. LYNPARZA [Suspect]
     Active Substance: OLAPARIB
     Indication: Ovarian cancer
     Route: 048
     Dates: start: 20210602, end: 20220531
  2. TRAVATAN Z [Concomitant]
     Active Substance: TRAVOPROST
     Dosage: DOSE UNKNOWN
     Route: 047

REACTIONS (1)
  - Interstitial lung disease [Recovering/Resolving]

NARRATIVE: CASE EVENT DATE: 20220531
